FAERS Safety Report 6276279-0 (Version None)
Quarter: 2009Q3

REPORT INFORMATION
  Report Type: 
  Country: None (occurrence: None)
  Receive Date: 20090722
  Receipt Date: 20090713
  Transmission Date: 20100115
  Serious: Yes (Hospitalization)
  Sender: FDA-Public Use
  Company Number: JP-JNJFOC-20090506654

PATIENT
  Sex: Female
  Weight: 49 kg

DRUGS (2)
  1. ITRIZOLE [Suspect]
     Indication: ONYCHOMYCOSIS
     Route: 048
  2. ANZIEF [Suspect]
     Indication: HYPERURICAEMIA
     Route: 048

REACTIONS (2)
  - TOXIC SKIN ERUPTION [None]
  - UPPER RESPIRATORY TRACT INFLAMMATION [None]
